FAERS Safety Report 22971566 (Version 4)
Quarter: 2023Q4

REPORT INFORMATION
  Report Type: Report from Study
  Country: FR (occurrence: FR)
  Receive Date: 20230922
  Receipt Date: 20231122
  Transmission Date: 20240109
  Serious: No
  Sender: FDA-Public Use
  Company Number: FR-BIOGEN-2023BI01226407

PATIENT
  Age: 75 Year
  Sex: Female
  Weight: 50.7 kg

DRUGS (10)
  1. ADUCANUMAB [Suspect]
     Active Substance: ADUCANUMAB
     Indication: Dementia Alzheimer^s type
     Dosage: TITRATION PERIOD
     Route: 050
     Dates: start: 20230414, end: 20230414
  2. ADUCANUMAB [Suspect]
     Active Substance: ADUCANUMAB
     Dosage: TITRATION PERIOD
     Route: 050
     Dates: start: 20230511, end: 20230511
  3. ADUCANUMAB [Suspect]
     Active Substance: ADUCANUMAB
     Dosage: TITRATION PERIOD
     Route: 050
     Dates: start: 20230608, end: 20230608
  4. ADUCANUMAB [Suspect]
     Active Substance: ADUCANUMAB
     Dosage: TITRATION PERIOD
     Route: 050
     Dates: start: 20230706, end: 20230706
  5. ADUCANUMAB [Suspect]
     Active Substance: ADUCANUMAB
     Dosage: TITRATION PERIOD
     Route: 050
     Dates: start: 20230728, end: 20230728
  6. ADUCANUMAB [Suspect]
     Active Substance: ADUCANUMAB
     Dosage: TITRATION PERIOD
     Route: 050
     Dates: start: 20230829, end: 20230829
  7. NEURACEQ [Suspect]
     Active Substance: FLORBETABEN F-18
     Indication: Positron emission tomogram
     Route: 050
     Dates: start: 20230315, end: 20230315
  8. MIANSERIN [Concomitant]
     Active Substance: MIANSERIN
     Route: 050
     Dates: start: 20221208
  9. KARDEGIC [Concomitant]
     Active Substance: ASPIRIN DL-LYSINE
     Route: 050
     Dates: start: 20221208
  10. ATORVASTATIN [Concomitant]
     Active Substance: ATORVASTATIN
     Route: 050
     Dates: start: 20230512

REACTIONS (1)
  - Amyloid related imaging abnormality-oedema/effusion [Not Recovered/Not Resolved]

NARRATIVE: CASE EVENT DATE: 20230912
